FAERS Safety Report 17245299 (Version 1)
Quarter: 2020Q1

REPORT INFORMATION
  Report Type: Report from Study
  Country: JP (occurrence: JP)
  Receive Date: 20200108
  Receipt Date: 20200108
  Transmission Date: 20200409
  Serious: Yes (Death)
  Sender: FDA-Public Use
  Company Number: JP-REGULIS-2078641

PATIENT
  Sex: Female
  Weight: 45 kg

DRUGS (6)
  1. METHYLENE BLUE INTRAVENOUS INJECTION DAIICHI SANKYO [Suspect]
     Active Substance: METHYLENE BLUE
     Dates: start: 20190310, end: 20190310
  2. CALCICOL [Concomitant]
     Active Substance: CALCIUM GLUCONATE
     Dates: start: 20190310, end: 20190310
  3. EPINEPHRINE. [Concomitant]
     Active Substance: EPINEPHRINE
     Dates: start: 20190310, end: 20190310
  4. ROCURONIUM [Concomitant]
     Active Substance: ROCURONIUM BROMIDE
     Dates: start: 20190310, end: 20190310
  5. MEROPENEM. [Concomitant]
     Active Substance: MEROPENEM
     Dates: start: 20190310, end: 20190310
  6. METHYLENE BLUE INTRAVENOUS INJECTION 50 MG DAIICHI SANKYO [Suspect]
     Active Substance: METHYLENE BLUE
     Indication: METHAEMOGLOBINAEMIA
     Route: 042
     Dates: start: 20190310, end: 20190310

REACTIONS (1)
  - Death [Fatal]
